FAERS Safety Report 16062768 (Version 1)
Quarter: 2019Q1

REPORT INFORMATION
  Report Type: Spontaneous
  Country: US (occurrence: US)
  Receive Date: 20190312
  Receipt Date: 20190312
  Transmission Date: 20190418
  Serious: No
  Sender: FDA-Public Use
  Company Number: US-TRIS PHARMA, INC.-2019TRISPO00174

PATIENT

DRUGS (2)
  1. IBUPROFEN. [Suspect]
     Active Substance: IBUPROFEN
     Indication: PYREXIA
     Dosage: UNKNOWN DOSE AT EVERY 8 HOURS
     Route: 065
     Dates: start: 201901
  2. IBUPROFEN. [Suspect]
     Active Substance: IBUPROFEN
     Dosage: FOR THE LAST TWO DAYS
     Route: 065
     Dates: end: 201902

REACTIONS (4)
  - Hypophagia [Unknown]
  - Malaise [Unknown]
  - Lethargy [Unknown]
  - Vomiting [Unknown]

NARRATIVE: CASE EVENT DATE: 201901
